FAERS Safety Report 16199142 (Version 5)
Quarter: 2020Q1

REPORT INFORMATION
  Report Type: Report from Study
  Country: US (occurrence: US)
  Receive Date: 20190415
  Receipt Date: 20200309
  Transmission Date: 20200409
  Serious: Yes (Hospitalization)
  Sender: FDA-Public Use
  Company Number: US-PFIZER INC-2019078977

PATIENT
  Age: 67 Year
  Sex: Female

DRUGS (2)
  1. IBRANCE [Suspect]
     Active Substance: PALBOCICLIB
     Dosage: 100 MG, CYCLIC (DAILY, 21 DAYS ON AND 7 DAYS OFF)
     Route: 048
     Dates: start: 20191014
  2. IBRANCE [Suspect]
     Active Substance: PALBOCICLIB
     Indication: BREAST CANCER METASTATIC
     Dosage: 100 MG, CYCLIC (DAILY, 21 DAYS WITH 7 DAYS OFF)
     Route: 048
     Dates: start: 20190201

REACTIONS (15)
  - Blood pressure decreased [Unknown]
  - Product dose omission [Unknown]
  - Fatigue [Recovering/Resolving]
  - White blood cell count decreased [Recovering/Resolving]
  - Fluid retention [Unknown]
  - Onychoclasis [Recovering/Resolving]
  - Dry skin [Recovering/Resolving]
  - Blood sodium increased [Recovering/Resolving]
  - Chest pain [Unknown]
  - Nausea [Unknown]
  - Diarrhoea [Recovering/Resolving]
  - Arthralgia [Unknown]
  - Hyperhidrosis [Unknown]
  - Neoplasm progression [Unknown]
  - Blister [Unknown]

NARRATIVE: CASE EVENT DATE: 2019
